FAERS Safety Report 4861370-3 (Version None)
Quarter: 2005Q4

REPORT INFORMATION
  Report Type: 
  Country: None (occurrence: None)
  Receive Date: 20051129
  Receipt Date: 20050916
  Transmission Date: 20060501
  Serious: Yes (Hospitalization)
  Sender: FDA-Public Use
  Company Number: USA050393114

PATIENT
  Age: 32 Year
  Sex: Male

DRUGS (2)
  1. ZYPREXA [Suspect]
     Dosage: 10 MG/1 OTHER
  2. GEODON [Concomitant]

REACTIONS (2)
  - ANXIETY [None]
  - NEUROLEPTIC MALIGNANT SYNDROME [None]
